FAERS Safety Report 25174819 (Version 1)
Quarter: 2025Q2

REPORT INFORMATION
  Report Type: Spontaneous
  Country: US (occurrence: US)
  Receive Date: 20250408
  Receipt Date: 20250408
  Transmission Date: 20250717
  Serious: Yes (Other)
  Sender: PFIZER
  Company Number: US-PFIZER INC-202500058641

PATIENT
  Age: 84 Year
  Sex: Female

DRUGS (1)
  1. BRAFTOVI [Suspect]
     Active Substance: ENCORAFENIB
     Dosage: 300 MG ONCE DAILY (4 TABLETS) ON DAYS 1-28 EVERY 28 DAYS
     Route: 048

REACTIONS (1)
  - Spinal fracture [Unknown]
